FAERS Safety Report 6712622-3 (Version None)
Quarter: 2010Q2

REPORT INFORMATION
  Report Type: 
  Country: None (occurrence: None)
  Receive Date: 20100505
  Receipt Date: 20100505
  Transmission Date: 20101027
  Serious: Yes (Disabling, Other)
  Sender: FDA-Public Use
  Company Number: None

PATIENT
  Sex: Female
  Weight: 112.4921 kg

DRUGS (2)
  1. SEROQUEL XR [Suspect]
     Indication: ABNORMAL BEHAVIOUR
     Dosage: 2400 MG TABS AT NIGHT
     Dates: start: 20090501, end: 20100301
  2. SEROQUEL XR [Suspect]
     Indication: BIPOLAR DISORDER
     Dosage: 2400 MG TABS AT NIGHT
     Dates: start: 20090501, end: 20100301

REACTIONS (6)
  - ALOPECIA [None]
  - DYSPNOEA [None]
  - HYPERTENSION [None]
  - SUICIDAL IDEATION [None]
  - SWELLING [None]
  - WEIGHT INCREASED [None]
